FAERS Safety Report 13115338 (Version 1)
Quarter: 2017Q1

REPORT INFORMATION
  Report Type: Spontaneous
  Country: FR (occurrence: FR)
  Receive Date: 20170113
  Receipt Date: 20170113
  Transmission Date: 20170428
  Serious: Yes (Death)
  Sender: FDA-Public Use
  Company Number: FR-CANTON LABORATORIES, LLC-1062013

PATIENT
  Age: 71 Year
  Sex: Female

DRUGS (14)
  1. CATAPRESSAN (CLONIDINE HYDROCHLORIDE) [Suspect]
     Active Substance: CLONIDINE
     Route: 048
     Dates: end: 201612
  2. NAPROSYN [Suspect]
     Active Substance: NAPROXEN
     Indication: PRODUCT USED FOR UNKNOWN INDICATION
     Route: 048
     Dates: end: 201612
  3. VENLAFAXINE [Suspect]
     Active Substance: VENLAFAXINE HYDROCHLORIDE
     Route: 048
     Dates: end: 201612
  4. BIPRETERAX (PERINDOPRIL, INDAPAMIDE) [Suspect]
     Active Substance: INDAPAMIDE\PERINDOPRIL
     Route: 048
     Dates: end: 201612
  5. BITILDIEM (DILTIAZEM HYDROCHLORIDE) [Suspect]
     Active Substance: DILTIAZEM HYDROCHLORIDE
     Route: 048
     Dates: end: 201612
  6. BROMAZEPAM [Suspect]
     Active Substance: BROMAZEPAM
     Route: 048
     Dates: end: 201612
  7. INEXIUM (ESOMEPRAZOLE) [Suspect]
     Active Substance: ESOMEPRAZOLE
     Route: 048
     Dates: end: 201612
  8. DOLIPRANE [Suspect]
     Active Substance: ACETAMINOPHEN
     Route: 048
     Dates: end: 201612
  9. LEVOTHYROX (LEVOTHYROSINE SODIUM) [Suspect]
     Active Substance: LEVOTHYROXINE
     Route: 048
     Dates: end: 201612
  10. ACEBUTOLOL HYDROCHLORIDE. [Suspect]
     Active Substance: ACEBUTOLOL HYDROCHLORIDE
     Route: 048
     Dates: end: 201612
  11. VESICARE [Suspect]
     Active Substance: SOLIFENACIN SUCCINATE
     Route: 048
     Dates: end: 201612
  12. TAHOR [Suspect]
     Active Substance: ATORVASTATIN CALCIUM
     Route: 048
     Dates: end: 201612
  13. XARELTO [Suspect]
     Active Substance: RIVAROXABAN
     Route: 048
     Dates: end: 201612
  14. METFORMIN [Suspect]
     Active Substance: METFORMIN HYDROCHLORIDE
     Route: 048
     Dates: end: 201612

REACTIONS (3)
  - Cerebral haematoma [Fatal]
  - NIH stroke scale abnormal [None]
  - Hemiplegia [None]

NARRATIVE: CASE EVENT DATE: 20161206
